FAERS Safety Report 10273103 (Version 3)
Quarter: 2014Q4

REPORT INFORMATION
  Report Type: Spontaneous
  Country: US (occurrence: None)
  Receive Date: 20140630
  Receipt Date: 20141014
  Transmission Date: 20150528
  Serious: Yes (Hospitalization)
  Sender: FDA-Public Use
  Company Number: UNT-2014-002557

PATIENT
  Age: 61 Year
  Sex: Male
  Weight: 79.4 kg

DRUGS (1)
  1. TYVASO [Suspect]
     Active Substance: TREPROSTINIL
     Indication: COR PULMONALE CHRONIC
     Route: 055
     Dates: start: 20100723

REACTIONS (4)
  - Anaemia [None]
  - Arrhythmia [None]
  - Dyspnoea [None]
  - Sinus node dysfunction [None]

NARRATIVE: CASE EVENT DATE: 20140615
